FAERS Safety Report 8160462-3 (Version None)
Quarter: 2012Q1

REPORT INFORMATION
  Report Type: 
  Country: None (occurrence: None)
  Receive Date: 20120223
  Receipt Date: 20120213
  Transmission Date: 20120608
  Serious: Yes (Other)
  Sender: FDA-Public Use
  Company Number: US-BAYER-2012-015009

PATIENT
  Age: 63 Year
  Sex: Male

DRUGS (3)
  1. FENOFIBRATE [Concomitant]
  2. AVALIDE [Concomitant]
  3. ONE-A-DAY MEN'S 50 + ADVANTAGE [Suspect]
     Dosage: 1 DF, QD
     Route: 048

REACTIONS (1)
  - ANAEMIA [None]
